FAERS Safety Report 15840757 (Version 1)
Quarter: 2019Q1

REPORT INFORMATION
  Report Type: Spontaneous
  Country: US (occurrence: US)
  Receive Date: 20190118
  Receipt Date: 20190118
  Transmission Date: 20190417
  Serious: No
  Sender: FDA-Public Use
  Company Number: US-BRISTOL-MYERS SQUIBB COMPANY-BMS-2019-003655

PATIENT
  Sex: Female

DRUGS (1)
  1. ELIQUIS [Suspect]
     Active Substance: APIXABAN
     Indication: PRODUCT USED FOR UNKNOWN INDICATION
     Dosage: UNK
     Route: 065
     Dates: start: 20190109

REACTIONS (6)
  - Tongue disorder [Unknown]
  - Dysphagia [Unknown]
  - Lip disorder [Unknown]
  - Rash [Unknown]
  - Tongue erythema [Unknown]
  - Cheilitis [Unknown]

NARRATIVE: CASE EVENT DATE: 20190113
